FAERS Safety Report 9549340 (Version 2)
Quarter: 2013Q4

REPORT INFORMATION
  Report Type: Spontaneous
  Country: GB (occurrence: GB)
  Receive Date: 20130924
  Receipt Date: 20131017
  Transmission Date: 20140711
  Serious: Yes (Other)
  Sender: FDA-Public Use
  Company Number: GB-PFIZER INC-2013271113

PATIENT
  Age: 58 Year
  Sex: Female
  Weight: 69.2 kg

DRUGS (6)
  1. CHAMPIX [Suspect]
     Indication: SMOKING CESSATION THERAPY
     Dosage: 1 DF, 2X/DAY
     Dates: start: 20130627, end: 20130830
  2. VANCOMYCIN [Concomitant]
     Dosage: 5 MG, UNK
  3. SIMVASTATIN [Concomitant]
     Dosage: 40 MG, UNK
  4. LEVOTHYROXINE [Concomitant]
     Dosage: 100MG/25MG
  5. RAMIPRIL [Concomitant]
     Dosage: 5 MG, UNK
  6. METFORMIN [Concomitant]
     Dosage: 500 MG, UNK

REACTIONS (8)
  - Withdrawal syndrome [Recovering/Resolving]
  - Skin sensitisation [Recovering/Resolving]
  - Pain of skin [Recovering/Resolving]
  - Bedridden [Recovering/Resolving]
  - Oedema peripheral [Recovering/Resolving]
  - Nausea [Recovering/Resolving]
  - Vomiting [Recovering/Resolving]
  - Abdominal pain upper [Recovering/Resolving]
